FAERS Safety Report 14638190 (Version 2)
Quarter: 2018Q2

REPORT INFORMATION
  Report Type: Spontaneous
  Country: US (occurrence: US)
  Receive Date: 20180314
  Receipt Date: 20180405
  Transmission Date: 20180711
  Serious: No
  Sender: FDA-Public Use
  Company Number: US-TAKEDA-2018TUS005803

PATIENT
  Sex: Female
  Weight: 62.13 kg

DRUGS (2)
  1. LIALDA [Concomitant]
     Active Substance: MESALAMINE
     Indication: COLITIS ULCERATIVE
     Dosage: 4.8 G, QD
     Route: 048
     Dates: start: 2013
  2. ENTYVIO [Suspect]
     Active Substance: VEDOLIZUMAB
     Indication: COLITIS ULCERATIVE
     Dosage: 300 MG, UNK
     Route: 042
     Dates: start: 20150220

REACTIONS (2)
  - No adverse event [Unknown]
  - Pregnancy [Unknown]
